FAERS Safety Report 12837584 (Version 2)
Quarter: 2016Q4

REPORT INFORMATION
  Report Type: Spontaneous
  Country: FR (occurrence: FR)
  Receive Date: 20161012
  Receipt Date: 20161102
  Transmission Date: 20170207
  Serious: Yes (Other)
  Sender: FDA-Public Use
  Company Number: FR-ROCHE-1840571

PATIENT
  Age: 73 Year
  Sex: Female

DRUGS (2)
  1. LUCENTIS [Suspect]
     Active Substance: RANIBIZUMAB
     Indication: RETINAL VEIN OCCLUSION
     Route: 031
     Dates: start: 20160906, end: 20160906
  2. LERCAN [Concomitant]
     Active Substance: LERCANIDIPINE
     Indication: HYPERTENSION
     Route: 065

REACTIONS (2)
  - Dermatitis bullous [Recovered/Resolved]
  - Rash vesicular [Unknown]

NARRATIVE: CASE EVENT DATE: 20160921
